FAERS Safety Report 9690461 (Version 1)
Quarter: 2013Q4

REPORT INFORMATION
  Report Type: Spontaneous
  Country: US (occurrence: US)
  Receive Date: 20131115
  Receipt Date: 20131115
  Transmission Date: 20140711
  Serious: No
  Sender: FDA-Public Use
  Company Number: US-PFIZER INC-2013325526

PATIENT
  Age: 42 Year
  Sex: Female
  Weight: 55.33 kg

DRUGS (3)
  1. LYRICA [Suspect]
     Indication: FIBROMYALGIA
     Dosage: UNK
     Dates: start: 2002
  2. LYRICA [Suspect]
     Dosage: 150 MG, 3X/DAY
     Dates: start: 2012
  3. MAXERAN [Concomitant]
     Indication: MIGRAINE
     Dosage: UNK, AS NEEDED

REACTIONS (1)
  - Herpes zoster [Not Recovered/Not Resolved]
